FAERS Safety Report 4953720-4 (Version None)
Quarter: 2006Q1

REPORT INFORMATION
  Report Type: 
  Country: None (occurrence: None)
  Receive Date: 20060323
  Receipt Date: 20060323
  Transmission Date: 20060701
  Serious: Yes (Hospitalization)
  Sender: FDA-Public Use
  Company Number: None

PATIENT
  Age: 88 Year
  Sex: Male
  Weight: 62.1428 kg

DRUGS (2)
  1. WARFARIN    4MG [Suspect]
     Indication: PERIPHERAL VASCULAR DISORDER
     Dosage: SEE IMAGE
     Route: 048
     Dates: start: 20050402, end: 20060312
  2. WARFARIN    4MG [Suspect]
     Indication: THROMBOEMBOLECTOMY
     Dosage: SEE IMAGE
     Route: 048
     Dates: start: 20050402, end: 20060312

REACTIONS (2)
  - INTERNATIONAL NORMALISED RATIO INCREASED [None]
  - TRAUMATIC HAEMATOMA [None]
